FAERS Safety Report 10301878 (Version 1)
Quarter: 2014Q3

REPORT INFORMATION
  Report Type: Spontaneous
  Country: US (occurrence: None)
  Receive Date: 20140709
  Receipt Date: 20140709
  Transmission Date: 20150326
  Serious: No
  Sender: FDA-Public Use
  Company Number: None

PATIENT
  Age: 64 Year
  Sex: Female

DRUGS (2)
  1. TEMOZOLOMIDE [Suspect]
     Active Substance: TEMOZOLOMIDE
     Dosage: 200MG, QD X 5 DAYS, PO?
     Route: 048
  2. AFINITOR [Suspect]
     Active Substance: EVEROLIMUS
     Dosage: 10MG, QD, PO
     Route: 048

REACTIONS (1)
  - Oedema [None]

NARRATIVE: CASE EVENT DATE: 201406
